FAERS Safety Report 21114311 (Version 2)
Quarter: 2022Q3

REPORT INFORMATION
  Report Type: Spontaneous
  Country: AU (occurrence: AU)
  Receive Date: 20220721
  Receipt Date: 20220825
  Transmission Date: 20221027
  Serious: Yes (Hospitalization)
  Sender: FDA-Public Use
  Company Number: AU-PFIZER INC-202200982306

PATIENT
  Age: 26 Year
  Sex: Female

DRUGS (7)
  1. PAXLOVID [Suspect]
     Active Substance: NIRMATRELVIR\RITONAVIR
     Indication: COVID-19 treatment
     Dosage: UNK
     Route: 048
     Dates: start: 20220716, end: 20220718
  2. IMURAN [Concomitant]
     Active Substance: AZATHIOPRINE
     Indication: Crohn^s disease
     Dosage: 100 MG, DAILY
     Route: 048
     Dates: start: 20220503
  3. PENTASA [Concomitant]
     Active Substance: MESALAMINE
     Dosage: 3 G, DAILY
     Dates: start: 202112
  4. ESCITALOPRAM [Concomitant]
     Active Substance: ESCITALOPRAM OXALATE
     Dosage: 30 MG
     Dates: start: 20211106
  5. ESCITALOPRAM [Concomitant]
     Active Substance: ESCITALOPRAM OXALATE
     Dosage: 20 MG, DAILY
  6. FEMME TAB [Concomitant]
     Dosage: 1 DF, DAILY
     Dates: start: 20211110
  7. RABEPRAZOLE SODIUM [Concomitant]
     Active Substance: RABEPRAZOLE SODIUM
     Indication: Gastrooesophageal reflux disease
     Dosage: 20 MG, DAILY
     Route: 048
     Dates: start: 20211222

REACTIONS (8)
  - Dysgeusia [Recovering/Resolving]
  - Nausea [Recovered/Resolved]
  - Vomiting [Recovered/Resolved]
  - Diarrhoea [Unknown]
  - Blood phosphorus decreased [Unknown]
  - Blood potassium decreased [Unknown]
  - Lymphocyte count decreased [Unknown]
  - C-reactive protein increased [Unknown]

NARRATIVE: CASE EVENT DATE: 20220701
